FAERS Safety Report 7578705-3 (Version None)
Quarter: 2011Q2

REPORT INFORMATION
  Report Type: 
  Country: None (occurrence: None)
  Receive Date: 20110628
  Receipt Date: 20110617
  Transmission Date: 20111010
  Serious: Yes (Hospitalization)
  Sender: FDA-Public Use
  Company Number: FR-UCBSA-031521

PATIENT
  Age: 47 Year
  Sex: Female

DRUGS (7)
  1. AZATHIOPRINE SODIUM [Concomitant]
  2. REMICADE [Suspect]
     Dosage: 100 MG INJECTION
     Route: 042
     Dates: start: 20100301, end: 20100401
  3. CIMZIA [Suspect]
     Dosage: DOSE : 200 MG INJECTION
     Route: 058
     Dates: start: 20070601, end: 20081101
  4. HUMIRA [Suspect]
     Dosage: 40 MG INJECTION
     Route: 058
     Dates: start: 20080701, end: 20100301
  5. REMICADE [Suspect]
     Dosage: 100 MG INJECTION
     Route: 042
     Dates: start: 20060101, end: 20061201
  6. HUMIRA [Suspect]
     Dosage: 40 MG INJECTION
     Route: 058
     Dates: start: 20070201, end: 20070501
  7. AZATHIOPRINE SODIUM [Concomitant]
     Dates: start: 20010101, end: 20060101

REACTIONS (2)
  - MUSCULOSKELETAL PAIN [None]
  - CUTANEOUS LUPUS ERYTHEMATOSUS [None]
